FAERS Safety Report 21625881 (Version 2)
Quarter: 2022Q4

REPORT INFORMATION
  Report Type: Spontaneous
  Country: US (occurrence: US)
  Receive Date: 20221122
  Receipt Date: 20221206
  Transmission Date: 20230113
  Serious: Yes (Other)
  Sender: FDA-Public Use
  Company Number: US-LFBP-2022000392

PATIENT
  Age: 33 Year
  Sex: Male

DRUGS (4)
  1. SEVENFACT [Suspect]
     Active Substance: COAGULATION FACTOR VIIA RECOMBINANT HUMAN-JNCW
     Indication: Pain in extremity
     Route: 042
     Dates: start: 20220228, end: 20220228
  2. SEVENFACT [Suspect]
     Active Substance: COAGULATION FACTOR VIIA RECOMBINANT HUMAN-JNCW
     Indication: Pain in extremity
     Route: 042
     Dates: start: 20220422, end: 20220422
  3. SEVENFACT [Suspect]
     Active Substance: COAGULATION FACTOR VIIA RECOMBINANT HUMAN-JNCW
     Indication: Pain in extremity
     Route: 042
     Dates: start: 20220423, end: 20220423
  4. EMICIZUMAB [Concomitant]
     Active Substance: EMICIZUMAB
     Indication: Haemophilia A with anti factor VIII
     Route: 065

REACTIONS (3)
  - Condition aggravated [Unknown]
  - Thrombosis [Unknown]
  - Off label use [Unknown]

NARRATIVE: CASE EVENT DATE: 20220101
